FAERS Safety Report 11223642 (Version 3)
Quarter: 2015Q3

REPORT INFORMATION
  Report Type: Report from Study
  Country: CA (occurrence: CA)
  Receive Date: 20150629
  Receipt Date: 20150707
  Transmission Date: 20151125
  Serious: Yes (Hospitalization)
  Sender: FDA-Public Use
  Company Number: CA-ROCHE-1566806

PATIENT
  Age: 71 Year
  Sex: Male

DRUGS (5)
  1. AVASTIN [Suspect]
     Active Substance: BEVACIZUMAB
     Route: 042
     Dates: start: 20150520, end: 20150603
  2. DEXAMETHASONE. [Suspect]
     Active Substance: DEXAMETHASONE
     Indication: PRODUCT USED FOR UNKNOWN INDICATION
     Route: 065
  3. AVASTIN [Suspect]
     Active Substance: BEVACIZUMAB
     Indication: GLIOBLASTOMA
     Route: 042
     Dates: start: 20150310, end: 20150610
  4. DECADRON [Concomitant]
     Active Substance: DEXAMETHASONE
  5. CLOBAZAM [Concomitant]
     Active Substance: CLOBAZAM

REACTIONS (9)
  - White blood cell count decreased [Unknown]
  - Balance disorder [Unknown]
  - Seizure [Unknown]
  - Lethargy [Unknown]
  - Fatigue [Recovering/Resolving]
  - Contusion [Unknown]
  - Red blood cell count decreased [Unknown]
  - Fall [Unknown]
  - Platelet count decreased [Unknown]

NARRATIVE: CASE EVENT DATE: 201504
